FAERS Safety Report 7759728-8 (Version None)
Quarter: 2011Q3

REPORT INFORMATION
  Report Type: 
  Country: None (occurrence: None)
  Receive Date: 20110919
  Receipt Date: 20110912
  Transmission Date: 20111222
  Serious: Yes (Other)
  Sender: FDA-Public Use
  Company Number: US-ABBOTT-11P-163-0854955-00

PATIENT
  Age: 60 Year
  Sex: Female

DRUGS (10)
  1. LEVOTHYROXINE SODIUM [Concomitant]
     Indication: HYPOTHYROIDISM
     Dosage: DAILY DOSE: 25MCG
     Dates: start: 20080501
  2. LEVOTHYROXINE SODIUM [Concomitant]
     Dosage: DOSE REDUCED
  3. TACLONEX [Concomitant]
     Indication: PSORIASIS
     Dates: start: 20060101
  4. PREMARIN [Concomitant]
     Indication: PRODUCT USED FOR UNKNOWN INDICATION
     Dates: start: 20100218
  5. HUMIRA [Suspect]
     Indication: PSORIASIS
     Route: 058
     Dates: start: 20090403
  6. LAMICTAL [Concomitant]
     Indication: ANXIETY
     Dates: start: 20070516
  7. RESTASIS [Concomitant]
     Indication: DRY EYE
     Dosage: 1 DROP PER EYE QHS
     Dates: start: 20081201
  8. METHOTREXATE [Suspect]
     Indication: PRODUCT USED FOR UNKNOWN INDICATION
     Dates: start: 20070101, end: 20090601
  9. ALBUTEROL [Concomitant]
     Indication: ASTHMA
     Dates: start: 20041101
  10. PROTONIX [Concomitant]
     Indication: PRODUCT USED FOR UNKNOWN INDICATION

REACTIONS (13)
  - PSORIASIS [None]
  - LARYNGITIS [None]
  - HYPERTENSION [None]
  - GASTROOESOPHAGEAL REFLUX DISEASE [None]
  - INJECTION SITE URTICARIA [None]
  - TOOTH DISORDER [None]
  - ASTHMA [None]
  - ANXIETY [None]
  - OSTEOARTHRITIS [None]
  - HEPATIC ENZYME INCREASED [None]
  - INSOMNIA [None]
  - MUSCLE SPASMS [None]
  - NEURALGIA [None]
